FAERS Safety Report 21514283 (Version 1)
Quarter: 2022Q4

REPORT INFORMATION
  Report Type: Spontaneous
  Country: JP (occurrence: JP)
  Receive Date: 20221027
  Receipt Date: 20221027
  Transmission Date: 20230113
  Serious: Yes (Disabling)
  Sender: FDA-Public Use
  Company Number: ALC2022JP004849

PATIENT

DRUGS (2)
  1. BSS PLUS [Suspect]
     Active Substance: CALCIUM CHLORIDE\DEXTROSE\MAGNESIUM CHLORIDE\OXIGLUTATIONE\POTASSIUM CHLORIDE\SODIUM BICARBONATE\SOD
     Indication: Surgery
     Dosage: UNK
     Route: 065
     Dates: start: 20220916
  2. BSS PLUS [Suspect]
     Active Substance: CALCIUM CHLORIDE\DEXTROSE\MAGNESIUM CHLORIDE\OXIGLUTATIONE\POTASSIUM CHLORIDE\SODIUM BICARBONATE\SOD
     Dosage: UNK
     Route: 065
     Dates: start: 20220918

REACTIONS (3)
  - Eye inflammation [Not Recovered/Not Resolved]
  - Eye excision [Not Recovered/Not Resolved]
  - Fibrin [Not Recovered/Not Resolved]

NARRATIVE: CASE EVENT DATE: 20220918
